FAERS Safety Report 21550523 (Version 1)
Quarter: 2022Q4

REPORT INFORMATION
  Report Type: Spontaneous
  Country: None (occurrence: US)
  Receive Date: 20221103
  Receipt Date: 20221103
  Transmission Date: 20230113
  Serious: Yes (Hospitalization)
  Sender: FDA-Public Use
  Company Number: US-Alva-Amco Pharmacal Companies, Inc.-2134472

PATIENT
  Sex: Male

DRUGS (1)
  1. URICALM MAXIMUM STRENGTH [Suspect]
     Active Substance: PHENAZOPYRIDINE HYDROCHLORIDE
     Indication: Dysuria
     Route: 048
     Dates: start: 20221026, end: 20221027

REACTIONS (1)
  - Dysuria [Unknown]

NARRATIVE: CASE EVENT DATE: 20221027
